FAERS Safety Report 10223057 (Version 1)
Quarter: 2014Q2

REPORT INFORMATION
  Report Type: Spontaneous
  Country: ES (occurrence: ES)
  Receive Date: 20140607
  Receipt Date: 20140607
  Transmission Date: 20141212
  Serious: Yes (Hospitalization)
  Sender: FDA-Public Use
  Company Number: PHHY2014ES066128

PATIENT
  Age: 58 Year
  Sex: Male

DRUGS (1)
  1. EXFORGE HCT [Suspect]
     Indication: HYPERTENSION
     Dosage: 1 DF, QD (VALS 160 MG, AMLO 10 MG, HCTZ 12.5 MG)
     Route: 048
     Dates: start: 20140524

REACTIONS (1)
  - Renal colic [Recovered/Resolved]
